FAERS Safety Report 6634214-7 (Version None)
Quarter: 2010Q1

REPORT INFORMATION
  Report Type: 
  Country: None (occurrence: None)
  Receive Date: 20100315
  Receipt Date: 20100302
  Transmission Date: 20100710
  Serious: Yes (Hospitalization)
  Sender: FDA-Public Use
  Company Number: PHHY2010AR12171

PATIENT
  Sex: Male

DRUGS (2)
  1. RASILEZ [Suspect]
     Indication: BLOOD PRESSURE
     Dosage: 1 TABLET 300 MG DAILY
  2. TRILEPTAL [Suspect]
     Indication: HYPERTENSION
     Dosage: 1 TABLET 300 MG DAILY

REACTIONS (3)
  - BRAIN OPERATION [None]
  - HEAD INJURY [None]
  - SURGERY [None]
